FAERS Safety Report 16208049 (Version 4)
Quarter: 2020Q4

REPORT INFORMATION
  Report Type: Spontaneous
  Country: US (occurrence: US)
  Receive Date: 20190417
  Receipt Date: 20201019
  Transmission Date: 20210113
  Serious: Yes (Other)
  Sender: FDA-Public Use
  Company Number: US-VERTEX PHARMACEUTICALS-2019-003418

PATIENT
  Sex: Female
  Weight: 49 kg

DRUGS (20)
  1. KALYDECO [Suspect]
     Active Substance: IVACAFTOR
     Dosage: 150 MG, QD
     Route: 048
  2. CRYSELLE [Concomitant]
     Active Substance: ETHINYL ESTRADIOL\NORGESTREL
     Dosage: UNK, TABLET
     Route: 048
  3. MEPHYTON [Concomitant]
     Active Substance: PHYTONADIONE
     Dosage: 5 MG TABLET
     Route: 048
  4. TOBI [Concomitant]
     Active Substance: TOBRAMYCIN
     Dosage: 300MG/5ML SOLUTION
  5. AZITHROMYCIN ANHYDROUS. [Concomitant]
     Active Substance: AZITHROMYCIN ANHYDROUS
     Dosage: 250 MG, TABLET
     Route: 048
  6. VITAMIN K [PHYTOMENADIONE] [Concomitant]
     Dosage: 100 MICROGRAM, TABLET
     Route: 048
  7. KALYDECO [Suspect]
     Active Substance: IVACAFTOR
     Dosage: 150MG, TWICE WEEKLY
     Route: 048
     Dates: start: 20161117
  8. POTASSIUM CITRATE. [Concomitant]
     Active Substance: POTASSIUM CITRATE
     Dosage: 10 MEQ, EXTENDED RELEASE TABLET
  9. IPRATROPIUM [Concomitant]
     Active Substance: IPRATROPIUM
     Dosage: 0.03 % SPRAY
  10. CIPROFLOXACIN. [Concomitant]
     Active Substance: CIPROFLOXACIN
     Dosage: 750 MG TABLET
     Route: 048
  11. RESTASIS [Concomitant]
     Active Substance: CYCLOSPORINE
     Dosage: UNK, EMULSION
     Route: 047
  12. IBUPROFEN. [Concomitant]
     Active Substance: IBUPROFEN
     Dosage: UNK
  13. ADVAIR DISKUS [Concomitant]
     Active Substance: FLUTICASONE PROPIONATE\SALMETEROL XINAFOATE
     Dosage: 100-50
  14. DUONEB [Concomitant]
     Active Substance: ALBUTEROL SULFATE\IPRATROPIUM BROMIDE
     Dosage: 0.5 MG - 3 MG/ML SOLUTION
  15. KALYDECO [Suspect]
     Active Substance: IVACAFTOR
     Indication: CYSTIC FIBROSIS
     Dosage: 150 MG, BID
     Route: 048
  16. DOXYCYCLINE HYCLATE. [Concomitant]
     Active Substance: DOXYCYCLINE HYCLATE
     Dosage: 100 MG, CAPSULE
     Route: 048
  17. OXYCODONE-ACET [Concomitant]
     Active Substance: ACETAMINOPHEN\OXYCODONE HYDROCHLORIDE
     Dosage: UNK, 5-325
  18. OVRAL-LO [Concomitant]
     Dosage: 28 TABLET
     Route: 048
  19. CREON [Concomitant]
     Active Substance: PANCRELIPASE AMYLASE\PANCRELIPASE LIPASE\PANCRELIPASE PROTEASE
     Dosage: 12,000 UNITS DELAYED RELEASE CAPSULE
     Route: 048
  20. SPIRIVA [Concomitant]
     Active Substance: TIOTROPIUM BROMIDE MONOHYDRATE
     Dosage: 18 MICROGRAM

REACTIONS (3)
  - Illness [Unknown]
  - Sinusitis [Unknown]
  - Lung transplant [Unknown]

NARRATIVE: CASE EVENT DATE: 2017
